FAERS Safety Report 9617244 (Version 1)
Quarter: 2013Q4

REPORT INFORMATION
  Report Type: Spontaneous
  Country: CA (occurrence: CA)
  Receive Date: 20131011
  Receipt Date: 20131011
  Transmission Date: 20140711
  Serious: Yes (Death, Other)
  Sender: FDA-Public Use
  Company Number: CA-ABBVIE-13P-028-1156869-00

PATIENT
  Age: 68 Year
  Sex: Female

DRUGS (2)
  1. VALPROIC ACID [Suspect]
     Indication: PRODUCT USED FOR UNKNOWN INDICATION
  2. IMIPENEM CILASTATIN [Suspect]
     Indication: PNEUMONIA

REACTIONS (4)
  - Toxic epidermal necrolysis [Unknown]
  - Hepatitis fulminant [Fatal]
  - Hyperbilirubinaemia [Fatal]
  - Multi-organ failure [Fatal]
